FAERS Safety Report 25373985 (Version 1)
Quarter: 2025Q2

REPORT INFORMATION
  Report Type: Spontaneous
  Country: US (occurrence: None)
  Receive Date: 20250528
  Receipt Date: 20250528
  Transmission Date: 20250717
  Serious: Yes (Hospitalization)
  Sender: FDA-CTU
  Company Number: None

PATIENT
  Age: 79 Year
  Sex: Female
  Weight: 92.5 kg

DRUGS (2)
  1. DAPTOMYCIN [Suspect]
     Active Substance: DAPTOMYCIN
     Dosage: FREQUENCY : DAILY;?
     Route: 042
     Dates: start: 20250515, end: 20250525
  2. ERTAPENEM [Concomitant]
     Active Substance: ERTAPENEM
     Dates: start: 20250515

REACTIONS (2)
  - Postoperative wound infection [None]
  - Rhabdomyolysis [None]

NARRATIVE: CASE EVENT DATE: 20250526
